FAERS Safety Report 18597568 (Version 1)
Quarter: 2020Q4

REPORT INFORMATION
  Report Type: Report from Study
  Country: BR (occurrence: BR)
  Receive Date: 20201210
  Receipt Date: 20201210
  Transmission Date: 20210114
  Serious: Yes (Other)
  Sender: FDA-Public Use
  Company Number: BR-UCBSA-2020050093

PATIENT
  Age: 72 Year
  Sex: Female
  Weight: 59 kg

DRUGS (3)
  1. GLAUB [Concomitant]
     Active Substance: BRIMONIDINE TARTRATE
     Indication: VISUAL IMPAIRMENT
     Dosage: UNK
     Route: 061
  2. AEROFLUX [GUAIFENESIN;SALBUTAMOL SULFATE] [Concomitant]
     Indication: COUGH
     Dosage: UNK
     Route: 065
  3. CERTOLIZUMAB PEGOL RA [Suspect]
     Active Substance: CERTOLIZUMAB PEGOL
     Indication: RHEUMATOID ARTHRITIS
     Dosage: 400 MILLIGRAM
     Route: 058

REACTIONS (11)
  - Pyrexia [Recovered/Resolved]
  - Anosmia [Recovered/Resolved]
  - Ageusia [Recovered/Resolved]
  - Pain [Recovered/Resolved]
  - Suspected COVID-19 [Recovered/Resolved]
  - Visual impairment [Not Recovered/Not Resolved]
  - Fatigue [Recovered/Resolved]
  - Asthenia [Unknown]
  - Cough [Unknown]
  - Memory impairment [Not Recovered/Not Resolved]
  - Decreased appetite [Recovered/Resolved]

NARRATIVE: CASE EVENT DATE: 202004
